FAERS Safety Report 8832711 (Version 1)
Quarter: 2012Q4

REPORT INFORMATION
  Report Type: 
  Country: US (occurrence: US)
  Receive Date: 20121010
  Receipt Date: 20121010
  Transmission Date: 20130627
  Serious: No
  Sender: FDA-Public Use
  Company Number: US-PFIZER INC-2012250805

PATIENT
  Age: 83 Year
  Sex: Male
  Weight: 52.61 kg

DRUGS (3)
  1. GABAPENTIN [Suspect]
     Indication: NEUROPATHY PERIPHERAL
     Dosage: 400 mg, 1x/day
     Route: 048
     Dates: start: 2004
  2. PROSCAR [Concomitant]
     Dosage: 5 mg, UNK
  3. TERAZOSIN [Concomitant]
     Indication: HYPERTENSION
     Dosage: 9 mg, UNK

REACTIONS (2)
  - Restlessness [Unknown]
  - Dizziness [Unknown]
